FAERS Safety Report 8424964-4 (Version None)
Quarter: 2012Q2

REPORT INFORMATION
  Report Type: 
  Country: None (occurrence: None)
  Receive Date: 20120611
  Receipt Date: 20120601
  Transmission Date: 20120825
  Serious: Yes (Hospitalization)
  Sender: FDA-Public Use
  Company Number: FR-UCBSA-058681

PATIENT
  Age: 51 Year
  Sex: Female

DRUGS (4)
  1. CELLCEPT [Suspect]
     Route: 048
     Dates: start: 20120321, end: 20120415
  2. DEPAKENE [Concomitant]
     Dosage: UNKNOWN DOSE
  3. KEPPRA [Suspect]
     Indication: CONVULSION
     Dosage: UNKNOWN DOSE
     Route: 048
     Dates: start: 20120412, end: 20120423
  4. MYCOPHENOLATE MOFETIL [Suspect]
     Route: 048
     Dates: end: 20120320

REACTIONS (2)
  - NEUTROPENIA [None]
  - THROMBOCYTOPENIA [None]
